FAERS Safety Report 18699515 (Version 4)
Quarter: 2021Q4

REPORT INFORMATION
  Report Type: Spontaneous
  Country: US (occurrence: US)
  Receive Date: 20210104
  Receipt Date: 20211014
  Transmission Date: 20220304
  Serious: Yes (Life-Threatening)
  Sender: FDA-Public Use
  Company Number: US-PFIZER INC-2020518528

PATIENT
  Age: 26 Year
  Sex: Male

DRUGS (1)
  1. LYRICA [Suspect]
     Active Substance: PREGABALIN
     Dosage: UNK

REACTIONS (7)
  - Drug withdrawal syndrome [Unknown]
  - Memory impairment [Unknown]
  - Dizziness [Recovered/Resolved]
  - Feeling abnormal [Unknown]
  - Headache [Unknown]
  - Alopecia [Unknown]
  - Intentional dose omission [Unknown]
